FAERS Safety Report 5567208-3 (Version None)
Quarter: 2007Q4

REPORT INFORMATION
  Report Type: 
  Country: None (occurrence: None)
  Receive Date: 20071219
  Receipt Date: 20071213
  Transmission Date: 20080405
  Serious: Yes (Other)
  Sender: FDA-Public Use
  Company Number: GB-WYE-G00717007

PATIENT
  Sex: Female

DRUGS (1)
  1. EFFEXOR [Suspect]
     Indication: DEPRESSION
     Route: 048
     Dates: start: 20071012

REACTIONS (4)
  - AGITATION [None]
  - DEPRESSED MOOD [None]
  - FEELING ABNORMAL [None]
  - SUICIDAL IDEATION [None]
